FAERS Safety Report 13120840 (Version 1)
Quarter: 2017Q1

REPORT INFORMATION
  Report Type: Spontaneous
  Country: US (occurrence: US)
  Receive Date: 20170117
  Receipt Date: 20170117
  Transmission Date: 20170428
  Serious: Yes (Death, Other)
  Sender: FDA-Public Use
  Company Number: US-LANNETT COMPANY, INC.-US-2017LAN000242

PATIENT
  Age: 46 Year
  Sex: Female

DRUGS (4)
  1. DIAZEPAM. [Suspect]
     Active Substance: DIAZEPAM
     Indication: PRODUCT USED FOR UNKNOWN INDICATION
     Dosage: UNK
     Route: 048
  2. BUPROPION HCL ER [Suspect]
     Active Substance: BUPROPION HYDROCHLORIDE
     Indication: PRODUCT USED FOR UNKNOWN INDICATION
     Dosage: UNK
     Route: 048
  3. TAPENTADOL [Suspect]
     Active Substance: TAPENTADOL
     Indication: PRODUCT USED FOR UNKNOWN INDICATION
     Dosage: UNK
     Route: 048
  4. AMITRIPTYLINE [Suspect]
     Active Substance: AMITRIPTYLINE
     Indication: PRODUCT USED FOR UNKNOWN INDICATION
     Dosage: UNK
     Route: 048

REACTIONS (17)
  - Cardiac arrest [Fatal]
  - Aphasia [Unknown]
  - Completed suicide [Fatal]
  - Seizure [Unknown]
  - Tonic posturing [Unknown]
  - Toxicity to various agents [Fatal]
  - Staring [Unknown]
  - Agitation [Unknown]
  - Intentional overdose [Fatal]
  - Drug screen positive [Unknown]
  - Confusional state [Unknown]
  - Dystonia [Unknown]
  - Tachycardia [Unknown]
  - Grimacing [Unknown]
  - Restlessness [Unknown]
  - Mental status changes [Unknown]
  - Postictal state [Unknown]

NARRATIVE: CASE EVENT DATE: 2015
